FAERS Safety Report 8236537-7 (Version None)
Quarter: 2012Q1

REPORT INFORMATION
  Report Type: 
  Country: None (occurrence: None)
  Receive Date: 20120326
  Receipt Date: 20120326
  Transmission Date: 20120608
  Serious: No
  Sender: FDA-Public Use
  Company Number: None

PATIENT
  Age: 77 Year
  Sex: Male
  Weight: 86.3 kg

DRUGS (2)
  1. HEPARIN [Suspect]
     Indication: DEEP VEIN THROMBOSIS
     Dosage: 14.1 ML PER HOUR IV
     Route: 042
     Dates: start: 20120201, end: 20120203
  2. ENOXAPARIN [Suspect]
     Indication: DEEP VEIN THROMBOSIS
     Dosage: 90 MG BID SQ
     Route: 058
     Dates: start: 20120203, end: 20120205

REACTIONS (1)
  - GASTRIC HAEMORRHAGE [None]
